FAERS Safety Report 7736457-8 (Version None)
Quarter: 2011Q3

REPORT INFORMATION
  Report Type: 
  Country: None (occurrence: None)
  Receive Date: 20110908
  Receipt Date: 20110901
  Transmission Date: 20111222
  Serious: Yes (Hospitalization, Other)
  Sender: FDA-Public Use
  Company Number: FR-BRISTOL-MYERS SQUIBB COMPANY-15393689

PATIENT
  Age: 64 Year
  Sex: Female
  Weight: 79 kg

DRUGS (4)
  1. LEXOMIL [Concomitant]
     Indication: ANXIETY
     Dosage: 1DF=1/4TAB
     Route: 048
     Dates: start: 20080701
  2. ESBERIVEN [Concomitant]
     Indication: VENOUS INSUFFICIENCY
     Route: 048
     Dates: start: 20090501
  3. IPILIMUMAB [Suspect]
     Indication: METASTATIC MALIGNANT MELANOMA
     Dosage: 4 INF:03 SEPTEMBER, 27 SEPTEMBER, 15 OCTOBER AND 04 NOVEMBER 2010. STARTED 9 MONTHS AGO.INJ.
     Route: 042
     Dates: start: 20100903
  4. DONORMYL [Concomitant]
     Indication: ANXIETY
     Dosage: 15MG TABS,1DF=1TAB
     Route: 048
     Dates: start: 20090501

REACTIONS (5)
  - VITILIGO [None]
  - MYOSITIS [None]
  - EOSINOPHILIA [None]
  - ALOPECIA [None]
  - RASH MACULO-PAPULAR [None]
